FAERS Safety Report 8429541-7 (Version None)
Quarter: 2012Q2

REPORT INFORMATION
  Report Type: 
  Country: None (occurrence: None)
  Receive Date: 20120612
  Receipt Date: 20120605
  Transmission Date: 20120825
  Serious: Yes (Other)
  Sender: FDA-Public Use
  Company Number: US-PFIZER INC-2012136299

PATIENT

DRUGS (1)
  1. PREMARIN [Suspect]
     Dosage: UNK

REACTIONS (3)
  - ARTHRITIS [None]
  - INTERVERTEBRAL DISC PROTRUSION [None]
  - FIBROMYALGIA [None]
